FAERS Safety Report 12020308 (Version 1)
Quarter: 2016Q1

REPORT INFORMATION
  Report Type: Spontaneous
  Country: GB (occurrence: GB)
  Receive Date: 20160206
  Receipt Date: 20160206
  Transmission Date: 20160526
  Serious: Yes (Life-Threatening, Other)
  Sender: FDA-Public Use
  Company Number: GB-AUROBINDO-AUR-APL-2016-00871

PATIENT
  Age: 58 Year
  Sex: Male
  Weight: 76 kg

DRUGS (5)
  1. AMITRIPTYLINE [Suspect]
     Active Substance: AMITRIPTYLINE
     Indication: PAIN
     Dosage: 25 MG, TWO TIMES A DAY
     Route: 048
  2. CO-DYDRAMOL [Suspect]
     Active Substance: ACETAMINOPHEN\DIHYDROCODEINE
     Indication: PAIN
     Dosage: 8 DF, UNK
     Route: 048
  3. NAPROXEN. [Suspect]
     Active Substance: NAPROXEN
     Indication: PAIN
     Dosage: 4 DF, UNK
     Route: 048
  4. OMEPRAZOLE. [Suspect]
     Active Substance: OMEPRAZOLE
     Indication: ABDOMINAL HERNIA
     Dosage: 1 DF, ONCE A DAY
     Route: 048
  5. LAXIDO [Suspect]
     Active Substance: POLYETHYLENE GLYCOL 3350\POTASSIUM CHLORIDE\SODIUM BICARBONATE\SODIUM CHLORIDE
     Indication: CONSTIPATION
     Dosage: 1 DF, ONCE A DAY
     Route: 048

REACTIONS (4)
  - Constipation [Unknown]
  - Depressed mood [Unknown]
  - Memory impairment [Unknown]
  - Confusional state [Unknown]
